FAERS Safety Report 8510290-1 (Version None)
Quarter: 2012Q3

REPORT INFORMATION
  Report Type: 
  Country: None (occurrence: None)
  Receive Date: 20120713
  Receipt Date: 20120709
  Transmission Date: 20120928
  Serious: Yes (Other)
  Sender: FDA-Public Use
  Company Number: US-CELGENEUS-163-21880-12070865

PATIENT
  Age: 62 Year
  Sex: Female

DRUGS (12)
  1. ATIVAN [Concomitant]
     Route: 048
  2. SENOKOT [Concomitant]
     Route: 048
  3. ACYCLOVIR [Concomitant]
     Route: 048
  4. CALCIUM CARBONATE ANTACID [Concomitant]
     Route: 048
  5. NEXIUM [Concomitant]
     Route: 048
  6. LOPRESSOR [Concomitant]
     Route: 048
  7. PENTAMIDINE ISETHIONATE [Concomitant]
     Route: 055
  8. DURAGESIC-100 [Concomitant]
     Route: 061
  9. ZOFRAN [Concomitant]
     Route: 048
  10. EFFEXOR [Concomitant]
     Route: 048
  11. REVLIMID [Suspect]
     Indication: MULTIPLE MYELOMA
     Dosage: 5 MILLIGRAM
     Route: 048
     Dates: start: 20120118, end: 20120608
  12. KAY CIEL DURA-TABS [Concomitant]
     Route: 048

REACTIONS (1)
  - ENDOMETRIAL CANCER STAGE III [None]
